FAERS Safety Report 18668246 (Version 1)
Quarter: 2020Q4

REPORT INFORMATION
  Report Type: Spontaneous
  Country: JP (occurrence: JP)
  Receive Date: 20201228
  Receipt Date: 20201228
  Transmission Date: 20210114
  Serious: Yes (Hospitalization, Congenital Anomaly)
  Sender: FDA-Public Use
  Company Number: JP-TEVA-2020-JP-1862986

PATIENT
  Age: 58 Year
  Sex: Male

DRUGS (2)
  1. IMATINIB MESYLATE. [Suspect]
     Active Substance: IMATINIB MESYLATE
     Indication: METASTASES TO PERITONEUM
  2. IMATINIB MESYLATE. [Suspect]
     Active Substance: IMATINIB MESYLATE
     Indication: GASTROINTESTINAL STROMAL TUMOUR
     Dosage: 400 MILLIGRAM DAILY; INITIATED ON POSTOPERATIVE DAY 14
     Route: 048

REACTIONS (2)
  - Acquired gene mutation [Unknown]
  - Drug resistance [Unknown]
